FAERS Safety Report 18935541 (Version 1)
Quarter: 2021Q1

REPORT INFORMATION
  Report Type: Spontaneous
  Country: CA (occurrence: CA)
  Receive Date: 20210225
  Receipt Date: 20210225
  Transmission Date: 20210420
  Serious: Yes (Other)
  Sender: FDA-Public Use
  Company Number: CA-TEVA-2021-CA-1882393

PATIENT
  Age: 27 Year
  Sex: Female
  Weight: 95 kg

DRUGS (8)
  1. VENLAFAXINE XR [Suspect]
     Active Substance: VENLAFAXINE HYDROCHLORIDE
     Indication: ANXIETY DISORDER
  2. HUMALOG [Concomitant]
     Active Substance: INSULIN LISPRO
  3. IRON SULPHATE [Concomitant]
     Active Substance: FERROUS SULFATE ANHYDROUS
  4. VENLAFAXINE XR [Suspect]
     Active Substance: VENLAFAXINE HYDROCHLORIDE
     Indication: MAJOR DEPRESSION
     Dosage: 150 MILLIGRAM DAILY; EXTENDED RELEASE
     Route: 048
  5. IMOVANE [Concomitant]
     Active Substance: ZOPICLONE
  6. LOSEC [Concomitant]
     Active Substance: OMEPRAZOLE
  7. TRANDATE [Concomitant]
     Active Substance: LABETALOL HYDROCHLORIDE
  8. ZANTAC [Concomitant]
     Active Substance: RANITIDINE HYDROCHLORIDE

REACTIONS (1)
  - Pre-eclampsia [Recovered/Resolved]
